FAERS Safety Report 5016703-4 (Version None)
Quarter: 2006Q2

REPORT INFORMATION
  Report Type: 
  Country: None (occurrence: None)
  Receive Date: 20060526
  Receipt Date: 20060518
  Transmission Date: 20061013
  Serious: Yes (Disabling)
  Sender: FDA-Public Use
  Company Number: FR200601001484

PATIENT
  Age: 51 Year
  Sex: Male

DRUGS (6)
  1. GEMZAR [Suspect]
     Indication: METASTASES TO CENTRAL NERVOUS SYSTEM
     Dosage: 1250 MG/M2 OTHER, INTRAVENOUS; 1000 MG/M2, OTHER, INTRAVENOUS
     Route: 042
     Dates: start: 20050711, end: 20050901
  2. GEMZAR [Suspect]
     Indication: METASTASES TO CENTRAL NERVOUS SYSTEM
     Dosage: 1250 MG/M2 OTHER, INTRAVENOUS; 1000 MG/M2, OTHER, INTRAVENOUS
     Route: 042
     Dates: start: 20050901, end: 20051129
  3. CARBOPLATIN [Concomitant]
  4. THERAPEUTIC RADIOPHARMACEUTICALS [Concomitant]
  5. G-CSF (GRANULOCYTE COLONY STIMULATING FACTOR) [Concomitant]
  6. ONDANSETRON [Concomitant]

REACTIONS (6)
  - BLINDNESS [None]
  - HAEMATOTOXICITY [None]
  - METASTASES TO CENTRAL NERVOUS SYSTEM [None]
  - OPTIC NEURITIS RETROBULBAR [None]
  - RADIATION INJURY [None]
  - THERAPY NON-RESPONDER [None]
